FAERS Safety Report 14973087 (Version 1)
Quarter: 2018Q2

REPORT INFORMATION
  Report Type: Spontaneous
  Country: DE (occurrence: DE)
  Receive Date: 20180605
  Receipt Date: 20180605
  Transmission Date: 20180711
  Serious: Yes (Death, Other)
  Sender: FDA-Public Use
  Company Number: DE-AUROBINDO-AUR-APL-2018-030403

PATIENT
  Age: 8 Decade
  Sex: Male

DRUGS (16)
  1. CYTARABINE. [Concomitant]
     Active Substance: CYTARABINE
     Indication: ACUTE MYELOID LEUKAEMIA
     Dosage: 100 MG/M2/DAY, DAYS 1 TO 7
     Route: 042
     Dates: start: 201405
  2. MELPHALAN. [Concomitant]
     Active Substance: MELPHALAN
     Indication: BONE MARROW CONDITIONING REGIMEN
     Dosage: 150 MG/M2, ON DAY -2
     Route: 042
     Dates: start: 201409
  3. MITOXANTRONE HYDROCHLORIDE. [Concomitant]
     Active Substance: MITOXANTRONE HYDROCHLORIDE
     Indication: ACUTE MYELOID LEUKAEMIA
     Dosage: 30 MG/M2/DAY, DAYS 1 AND 5
     Route: 042
     Dates: start: 201408
  4. VORICONAZOLE. [Suspect]
     Active Substance: VORICONAZOLE
     Indication: ASPERGILLUS INFECTION
     Dosage: 4 MG/KG/DAY, BID
     Route: 042
     Dates: start: 201409, end: 201409
  5. FLUDARABINE PHOSPHATE. [Concomitant]
     Active Substance: FLUDARABINE PHOSPHATE
     Indication: BONE MARROW CONDITIONING REGIMEN
     Dosage: 30 MG/M2/DAY, DAYS -6 TO -2;
     Route: 065
     Dates: start: 201409
  6. DECITABINE. [Concomitant]
     Active Substance: DECITABINE
     Indication: ACUTE MYELOID LEUKAEMIA
     Dosage: 20 MG/M2/DAY, DAYS 1 TO 5
     Route: 042
     Dates: start: 2014
  7. ETOPOSIDE. [Concomitant]
     Active Substance: ETOPOSIDE
     Indication: ACUTE MYELOID LEUKAEMIA
     Dosage: 100 MG/M2/DAY, DAYS 3 TO 7
     Route: 042
     Dates: start: 201405
  8. VORICONAZOLE. [Suspect]
     Active Substance: VORICONAZOLE
     Indication: ANTIFUNGAL TREATMENT
     Dosage: 6 MG/KG/DAY, BID, LOADING DOSE
     Route: 042
     Dates: start: 201409, end: 201409
  9. POSACONAZOLE [Suspect]
     Active Substance: POSACONAZOLE
     Indication: ANTIFUNGAL PROPHYLAXIS
     Dosage: 200 MG, TID
     Route: 048
     Dates: start: 201405
  10. CASPOFUNGIN ACETATE. [Suspect]
     Active Substance: CASPOFUNGIN ACETATE
     Indication: ANTIFUNGAL TREATMENT
     Dosage: 70 MG, QD (LOADING DOSE)
     Route: 042
     Dates: start: 201409, end: 201409
  11. AMPHOTERICIN B. [Suspect]
     Active Substance: AMPHOTERICIN B
     Indication: ASPERGILLUS INFECTION
     Dosage: ()
     Route: 065
  12. AMPHOTERICIN B. [Suspect]
     Active Substance: AMPHOTERICIN B
     Indication: ANTIFUNGAL TREATMENT
     Dosage: 3 MG/KG/DAY SINCE DAY -6
     Route: 042
     Dates: start: 201409, end: 201409
  13. CASPOFUNGIN ACETATE. [Suspect]
     Active Substance: CASPOFUNGIN ACETATE
     Dosage: 50 MG, QID
     Route: 042
     Dates: start: 201409
  14. IDARUBICIN HYDROCHLORIDE. [Concomitant]
     Active Substance: IDARUBICIN HYDROCHLORIDE
     Indication: ACUTE MYELOID LEUKAEMIA
     Dosage: 12 MG/M2/DAY, DAYS 2, 4 AND 6
     Route: 042
     Dates: start: 201405
  15. CYTARABINE. [Concomitant]
     Active Substance: CYTARABINE
     Dosage: 2000 MG/M2/DAY B.I.D., DAYS 1 AND 5 (2)
     Route: 042
     Dates: start: 201408
  16. ANTILYMPHOCYTE IMMUNOGLOBULIN [Concomitant]
     Active Substance: THYMOCYTE IMMUNE GLOBULIN NOS
     Indication: BONE MARROW CONDITIONING REGIMEN
     Dosage: 10 MG/KG/DAY, DAYS -5 TO -2
     Route: 042
     Dates: start: 201409

REACTIONS (5)
  - Drug ineffective [Fatal]
  - Cerebral aspergillosis [Fatal]
  - Aspergillus infection [Fatal]
  - Drug resistance [Fatal]
  - Bronchopulmonary aspergillosis [Fatal]

NARRATIVE: CASE EVENT DATE: 201408
